FAERS Safety Report 10182885 (Version 2)
Quarter: 2014Q2

REPORT INFORMATION
  Report Type: Spontaneous
  Country: US (occurrence: US)
  Receive Date: 20140520
  Receipt Date: 20140520
  Transmission Date: 20141212
  Serious: No
  Sender: FDA-Public Use
  Company Number: US-ASTRAZENECA-2004UW01294

PATIENT
  Age: 899 Month
  Sex: Female
  Weight: 53.1 kg

DRUGS (8)
  1. ATACAND [Suspect]
     Indication: HYPERTENSION
     Route: 048
     Dates: start: 200301
  2. NEXIUM [Suspect]
     Indication: GASTROOESOPHAGEAL REFLUX DISEASE
     Route: 048
     Dates: start: 20131107
  3. NEXIUM [Suspect]
     Indication: BACK PAIN
     Route: 048
     Dates: start: 20131107
  4. NEXIUM [Suspect]
     Indication: DYSPEPSIA
     Route: 048
     Dates: start: 20131107
  5. COUMADIN [Concomitant]
  6. PRAVACHOL [Concomitant]
  7. NORVAC [Concomitant]
  8. DIOVAN [Concomitant]

REACTIONS (5)
  - Headache [Not Recovered/Not Resolved]
  - Abdominal pain upper [Unknown]
  - Dyspepsia [Unknown]
  - Back pain [Unknown]
  - Off label use [Unknown]
